FAERS Safety Report 20167170 (Version 2)
Quarter: 2021Q4

REPORT INFORMATION
  Report Type: Spontaneous
  Country: US (occurrence: US)
  Receive Date: 20211209
  Receipt Date: 20211224
  Transmission Date: 20220303
  Serious: Yes (Hospitalization, Disabling)
  Sender: FDA-Public Use
  Company Number: US-TEVA-2021-US-1984975

PATIENT
  Age: 4 Decade
  Sex: Female

DRUGS (2)
  1. PREDNISONE [Suspect]
     Active Substance: PREDNISONE
     Indication: Rheumatoid arthritis
     Route: 065
  2. RITUXIMAB [Suspect]
     Active Substance: RITUXIMAB
     Indication: Rheumatoid arthritis
     Route: 065

REACTIONS (7)
  - Deafness neurosensory [Unknown]
  - Panniculitis lobular [Recovering/Resolving]
  - Enterovirus infection [Recovering/Resolving]
  - Abnormal loss of weight [Unknown]
  - Myopathy [Unknown]
  - Nasal oedema [Recovering/Resolving]
  - Fat necrosis [Recovering/Resolving]
